FAERS Safety Report 13612943 (Version 1)
Quarter: 2017Q2

REPORT INFORMATION
  Report Type: Spontaneous
  Country: US (occurrence: US)
  Receive Date: 20170605
  Receipt Date: 20170605
  Transmission Date: 20170830
  Serious: No
  Sender: FDA-Public Use
  Company Number: US-SUNOVION-2017SUN002293

PATIENT

DRUGS (5)
  1. LITHIUM. [Suspect]
     Active Substance: LITHIUM
  2. KLONOPIN [Suspect]
     Active Substance: CLONAZEPAM
  3. REMERON [Suspect]
     Active Substance: MIRTAZAPINE
  4. TEGRETOL [Suspect]
     Active Substance: CARBAMAZEPINE
  5. LATUDA [Suspect]
     Active Substance: LURASIDONE HYDROCHLORIDE
     Dosage: UNK
     Route: 048

REACTIONS (2)
  - Drug interaction [Unknown]
  - Choking [Unknown]
